FAERS Safety Report 11004181 (Version 1)
Quarter: 2015Q1

REPORT INFORMATION
  Report Type: Spontaneous
  Country: US (occurrence: None)
  Receive Date: 20150227
  Receipt Date: 20150227
  Transmission Date: 20150721
  Serious: Yes (Other)
  Sender: FDA-Public Use
  Company Number: OMPQ-PR-1409S-1153

PATIENT
  Age: 22 Year
  Sex: Male

DRUGS (7)
  1. IBUPROFEN. [Concomitant]
     Active Substance: IBUPROFEN
  2. OMNIPAQUE [Suspect]
     Active Substance: IOHEXOL
     Indication: DIAGNOSTIC PROCEDURE
     Route: 042
     Dates: start: 20140804, end: 20140804
  3. OMNIPAQUE [Suspect]
     Active Substance: IOHEXOL
     Indication: DIARRHOEA
     Route: 042
     Dates: start: 20140804, end: 20140804
  4. OMNIPAQUE [Suspect]
     Active Substance: IOHEXOL
     Indication: PAIN
     Route: 042
     Dates: start: 20140804, end: 20140804
  5. DAPTOMYCIN. [Concomitant]
     Active Substance: DAPTOMYCIN
  6. OMNIPAQUE [Suspect]
     Active Substance: IOHEXOL
     Indication: PYREXIA
     Route: 042
     Dates: start: 20140804, end: 20140804
  7. TYLENOL [Concomitant]
     Active Substance: ACETAMINOPHEN

REACTIONS (2)
  - Sneezing [None]
  - Hypersensitivity [None]

NARRATIVE: CASE EVENT DATE: 20140804
